FAERS Safety Report 13719663 (Version 1)
Quarter: 2017Q3

REPORT INFORMATION
  Report Type: Spontaneous
  Country: US (occurrence: US)
  Receive Date: 20170705
  Receipt Date: 20170705
  Transmission Date: 20171127
  Serious: No
  Sender: FDA-Public Use
  Company Number: US-ROCHE-1837194

PATIENT
  Age: 50 Year
  Sex: Female

DRUGS (3)
  1. GANCICLOVIR. [Suspect]
     Active Substance: GANCICLOVIR
     Indication: PROPHYLAXIS
     Route: 065
  2. FOSCARNET [Concomitant]
     Active Substance: FOSCARNET
     Route: 065
  3. FOSCARNET [Concomitant]
     Active Substance: FOSCARNET
     Route: 042

REACTIONS (1)
  - Drug resistance [Unknown]
